FAERS Safety Report 24372536 (Version 2)
Quarter: 2024Q3

REPORT INFORMATION
  Report Type: Spontaneous
  Country: CA (occurrence: CA)
  Receive Date: 20240927
  Receipt Date: 20240930
  Transmission Date: 20241017
  Serious: No
  Sender: CELLTRION
  Company Number: CA-CELLTRION INC.-2024CA022328

PATIENT

DRUGS (5)
  1. INFLIXIMAB [Suspect]
     Active Substance: INFLIXIMAB
     Indication: Colitis ulcerative
     Dosage: 240 MG, EVERY 2 WEEKS
     Route: 058
     Dates: start: 20240912
  2. PREDNISONE [Concomitant]
     Active Substance: PREDNISONE
     Dosage: STARTS AT 60MG AND LOWERS DOSE BY 1-2 TABS WEEKLY. DID THIS 3 TIMES SO FAR
  3. PREDNISONE [Concomitant]
     Active Substance: PREDNISONE
     Dosage: CURRENTLY TAKING ANOTHER KIND OF PREDNISONE NOW FOR ANOTHER 2 MONTHS. DOESN^T KNOW DOSE.
  4. IRON [Concomitant]
     Active Substance: IRON
     Dosage: UNK
  5. CALCIUM [Concomitant]
     Active Substance: CALCIUM
     Dosage: UNK

REACTIONS (1)
  - Off label use [Unknown]
